FAERS Safety Report 4697764-9 (Version None)
Quarter: 2005Q2

REPORT INFORMATION
  Report Type: 
  Country: None (occurrence: None)
  Receive Date: 20050623
  Receipt Date: 20050613
  Transmission Date: 20051028
  Serious: No
  Sender: FDA-Public Use
  Company Number: US-JNJFOC-20040901274

PATIENT

DRUGS (1)
  1. TOPAMAX [Suspect]
     Dates: end: 20040501

REACTIONS (1)
  - NO ADVERSE DRUG EFFECT [None]
